FAERS Safety Report 7808905-6 (Version None)
Quarter: 2011Q4

REPORT INFORMATION
  Report Type: 
  Country: None (occurrence: None)
  Receive Date: 20111012
  Receipt Date: 20111004
  Transmission Date: 20120403
  Serious: Yes (Other)
  Sender: FDA-Public Use
  Company Number: PHHY2011HU84500

PATIENT
  Age: 57 Year
  Sex: Female

DRUGS (13)
  1. MODUXIN MR [Concomitant]
     Dosage: 35 MG, BID
     Route: 048
  2. LETROZOLE [Concomitant]
     Dates: start: 20090731, end: 20100901
  3. FUROSEMIDE [Concomitant]
     Dosage: 40 MG, 2 TIMES A WEEK
  4. VEROSPIRON [Concomitant]
     Dosage: 50 MG, 2 TIMES A WEEK
     Route: 048
  5. BEVACIZUMAB [Concomitant]
     Dates: start: 20101208
  6. AVASTIN [Suspect]
     Dosage: 750 MG, UNK
  7. CLODRONIC ACID [Concomitant]
     Dates: start: 20101130, end: 20101221
  8. ZOMETA [Suspect]
     Indication: BREAST CANCER METASTATIC
     Dosage: 4 MG, QMO
     Dates: start: 20110301, end: 20110801
  9. LEVOTHYROXINE SODIUM [Concomitant]
     Dosage: 175 UG, QD
  10. BISOBLOC [Concomitant]
     Dosage: 1 DF, DAILY
  11. BRINALDIX [Concomitant]
     Dosage: 10 MG, 2 TIMES A WEEK
     Route: 048
  12. PACLITAXEL [Concomitant]
     Dates: start: 20101208
  13. TENOX [Concomitant]
     Dosage: 1 DF, DAILY
     Route: 048

REACTIONS (8)
  - ORAL DISORDER [None]
  - DENTAL CARIES [None]
  - OSTEONECROSIS OF JAW [None]
  - PAIN IN JAW [None]
  - SENSITIVITY OF TEETH [None]
  - EXPOSED BONE IN JAW [None]
  - SOFT TISSUE INFLAMMATION [None]
  - LOOSE TOOTH [None]
